FAERS Safety Report 12690194 (Version 2)
Quarter: 2016Q3

REPORT INFORMATION
  Report Type: Report from Study
  Country: US (occurrence: US)
  Receive Date: 20160826
  Receipt Date: 20160906
  Transmission Date: 20161109
  Serious: Yes (Other)
  Sender: FDA-Public Use
  Company Number: US-ROCHE-1819806

PATIENT
  Age: 71 Year
  Sex: Female
  Weight: 57 kg

DRUGS (25)
  1. BEVACIZUMAB [Suspect]
     Active Substance: BEVACIZUMAB
     Indication: NON-SMALL CELL LUNG CANCER STAGE IV
     Dosage: MOST RECENT DOSE 900 MG ON 03/AUG/2016
     Route: 042
     Dates: start: 20160518
  2. VITAMIN C [Concomitant]
     Active Substance: ASCORBIC ACID
  3. HYDROCORTISONE SODIUM SUCCINATE [Concomitant]
     Active Substance: HYDROCORTISONE SODIUM SUCCINATE
     Route: 065
     Dates: start: 20160518
  4. ALBUTEROL. [Concomitant]
     Active Substance: ALBUTEROL
     Route: 065
     Dates: start: 20160518
  5. METHIMAZOLE. [Concomitant]
     Active Substance: METHIMAZOLE
     Indication: HYPERTHYROIDISM
     Route: 065
     Dates: start: 20160722, end: 20160824
  6. CARBOPLATIN. [Suspect]
     Active Substance: CARBOPLATIN
     Indication: NON-SMALL CELL LUNG CANCER STAGE IV
     Dosage: MOST RECENT DOSE 470 MG ON 03/AUG/2016
     Route: 042
     Dates: start: 20160518
  7. ASPRIN [Concomitant]
     Active Substance: ASPIRIN
     Indication: CEREBROVASCULAR ACCIDENT PROPHYLAXIS
  8. ACETAMINOPHEN/HYDROCODONE [Concomitant]
     Active Substance: ACETAMINOPHEN\HYDROCODONE
     Indication: BACK PAIN
     Route: 065
     Dates: start: 20160518
  9. RANITIDINE. [Concomitant]
     Active Substance: RANITIDINE
     Route: 065
     Dates: start: 20160518
  10. FOSAPREPITANT [Concomitant]
     Active Substance: FOSAPREPITANT
     Route: 065
     Dates: start: 20160518
  11. PALONOSETRON [Concomitant]
     Active Substance: PALONOSETRON
     Route: 065
     Dates: start: 20160518
  12. VITAMIN D3 [Concomitant]
     Active Substance: CHOLECALCIFEROL
  13. LUTEIN [Concomitant]
     Active Substance: LUTEIN
  14. PROCHLORPERAZINE. [Concomitant]
     Active Substance: PROCHLORPERAZINE
     Route: 065
     Dates: start: 20160518
  15. CALCIUM CARBONATE. [Concomitant]
     Active Substance: CALCIUM CARBONATE
  16. ACETAMINOPHEN. [Concomitant]
     Active Substance: ACETAMINOPHEN
     Indication: PAIN
     Route: 065
     Dates: start: 20160518
  17. ATEZOLIZUMAB [Suspect]
     Active Substance: ATEZOLIZUMAB
     Indication: NON-SMALL CELL LUNG CANCER STAGE IV
     Dosage: MOST RECENT DOSE ON 29/JUN/2016
     Route: 042
     Dates: start: 20160518
  18. PACLITAXEL. [Suspect]
     Active Substance: PACLITAXEL
     Indication: NON-SMALL CELL LUNG CANCER STAGE IV
     Dosage: MOST RECENT DOSE 330 MG ON 03/AUG/2016
     Route: 042
     Dates: start: 20160518
  19. OMEGA 3 FATTY ACIDS [Concomitant]
     Active Substance: OMEGA-3 FATTY ACIDS
  20. VITAMIN E [Concomitant]
     Active Substance: .ALPHA.-TOCOPHEROL
  21. PEGFILGRASTIM [Concomitant]
     Active Substance: PEGFILGRASTIM
     Indication: PROPHYLAXIS
     Route: 065
     Dates: start: 20160518
  22. DIPHENHYDRAMINE. [Concomitant]
     Active Substance: DIPHENHYDRAMINE
     Route: 065
     Dates: start: 20160518
  23. LORATADINE. [Concomitant]
     Active Substance: LORATADINE
     Route: 065
     Dates: start: 20160518
  24. CRESTOR [Concomitant]
     Active Substance: ROSUVASTATIN CALCIUM
     Indication: HYPERLIPIDAEMIA
  25. EPINEPHRINE. [Concomitant]
     Active Substance: EPINEPHRINE
     Route: 065
     Dates: start: 20160518

REACTIONS (1)
  - Hepatic enzyme increased [Not Recovered/Not Resolved]

NARRATIVE: CASE EVENT DATE: 20160823
